FAERS Safety Report 24906683 (Version 2)
Quarter: 2025Q2

REPORT INFORMATION
  Report Type: Spontaneous
  Country: US (occurrence: US)
  Receive Date: 20250130
  Receipt Date: 20250605
  Transmission Date: 20250717
  Serious: No
  Sender: SANOFI AVENTIS
  Company Number: US-SA-2025SA026416

PATIENT
  Age: 88 Year
  Sex: Male
  Weight: 61.179 kg

DRUGS (1)
  1. KEVZARA [Suspect]
     Active Substance: SARILUMAB
     Indication: Polymyalgia rheumatica
     Dosage: 200 MG, QOW
     Route: 058

REACTIONS (4)
  - Back injury [Unknown]
  - Pain [Unknown]
  - Product dose omission issue [Unknown]
  - Urinary tract infection [Unknown]
